FAERS Safety Report 14693026 (Version 19)
Quarter: 2019Q3

REPORT INFORMATION
  Report Type: Report from Study
  Country: PA (occurrence: PA)
  Receive Date: 20180329
  Receipt Date: 20190704
  Transmission Date: 20191004
  Serious: Yes (Other)
  Sender: FDA-Public Use
  Company Number: PHHY2015PA101967

PATIENT
  Age: 65 Year
  Sex: Female
  Weight: 62 kg

DRUGS (14)
  1. SANDOSTATIN LAR DEPOT [Suspect]
     Active Substance: OCTREOTIDE ACETATE
     Dosage: UNK
     Route: 065
     Dates: end: 201805
  2. AMLODIPINE [Concomitant]
     Active Substance: AMLODIPINE BESYLATE
     Indication: PRODUCT USED FOR UNKNOWN INDICATION
     Dosage: UNK UNK, BID
     Route: 065
  3. SANDOSTATIN LAR DEPOT [Suspect]
     Active Substance: OCTREOTIDE ACETATE
     Dosage: 20 MG, UNK
     Route: 065
     Dates: start: 20180320
  4. SANDOSTATIN LAR DEPOT [Suspect]
     Active Substance: OCTREOTIDE ACETATE
     Indication: ACROMEGALY
     Dosage: UNK
     Route: 065
     Dates: start: 2011
  5. SANDOSTATIN LAR DEPOT [Suspect]
     Active Substance: OCTREOTIDE ACETATE
     Dosage: 20 MG, UNK
     Route: 065
     Dates: start: 201507
  6. IRBESARTAN. [Suspect]
     Active Substance: IRBESARTAN
     Dosage: 300 MG, QD
     Route: 065
  7. IRBESARTAN. [Suspect]
     Active Substance: IRBESARTAN
     Dosage: 1 DF, QD
     Route: 065
  8. CABERGOLINE. [Suspect]
     Active Substance: CABERGOLINE
     Indication: PRODUCT USED FOR UNKNOWN INDICATION
     Dosage: UNK
     Route: 065
  9. CABERGOLINE. [Suspect]
     Active Substance: CABERGOLINE
     Dosage: 1 MG, HALF TABLET ON WEDNESDAYS AND SUNDAYS
     Route: 065
  10. SANDOSTATIN LAR DEPOT [Suspect]
     Active Substance: OCTREOTIDE ACETATE
     Dosage: 20 MG, UNK
     Route: 065
     Dates: start: 20161031
  11. IRBESARTAN. [Suspect]
     Active Substance: IRBESARTAN
     Indication: PRODUCT USED FOR UNKNOWN INDICATION
     Dosage: 0.5 DF, BID
     Route: 065
  12. CABERGOLINE. [Suspect]
     Active Substance: CABERGOLINE
     Dosage: 0.25 DF, QW (FOR A MONTH)
     Route: 065
  13. SANDOSTATIN LAR DEPOT [Suspect]
     Active Substance: OCTREOTIDE ACETATE
     Dosage: 20 MG, QMO
     Route: 065
     Dates: start: 201901
  14. SANDOSTATIN LAR DEPOT [Suspect]
     Active Substance: OCTREOTIDE ACETATE
     Dosage: 20 MG, QMO
     Route: 065
     Dates: end: 20180430

REACTIONS (44)
  - Salivary gland cyst [Unknown]
  - Malaise [Unknown]
  - Bone pain [Recovered/Resolved]
  - Visual impairment [Unknown]
  - Eye inflammation [Unknown]
  - Muscular weakness [Unknown]
  - Arthralgia [Unknown]
  - Nephrolithiasis [Unknown]
  - Splenomegaly [Unknown]
  - Asthenia [Recovering/Resolving]
  - Headache [Unknown]
  - Dyspnoea [Recovered/Resolved]
  - Musculoskeletal pain [Unknown]
  - Thyroid cyst [Unknown]
  - Hypertrichosis [Recovering/Resolving]
  - Blood pressure decreased [Unknown]
  - Muscle spasms [Unknown]
  - Peripheral swelling [Recovered/Resolved]
  - Neck pain [Unknown]
  - Vein disorder [Unknown]
  - Diverticulum intestinal [Unknown]
  - Abdominal pain [Unknown]
  - Gait disturbance [Recovering/Resolving]
  - Somnolence [Unknown]
  - Oropharyngeal pain [Unknown]
  - Venous thrombosis [Unknown]
  - Back pain [Unknown]
  - Ear pain [Not Recovered/Not Resolved]
  - Vertigo [Recovering/Resolving]
  - Dyspepsia [Recovering/Resolving]
  - Benign salivary gland neoplasm [Unknown]
  - Chest pain [Unknown]
  - Dry mouth [Recovered/Resolved]
  - Bile duct stone [Unknown]
  - General physical health deterioration [Recovering/Resolving]
  - Sleep apnoea syndrome [Unknown]
  - Insulin-like growth factor increased [Unknown]
  - Alopecia [Unknown]
  - Cataract [Unknown]
  - Cholelithiasis [Unknown]
  - Blood growth hormone decreased [Unknown]
  - Gastrooesophageal reflux disease [Unknown]
  - Mobility decreased [Unknown]
  - Pain in extremity [Not Recovered/Not Resolved]

NARRATIVE: CASE EVENT DATE: 201503
